FAERS Safety Report 7240532-4 (Version None)
Quarter: 2011Q1

REPORT INFORMATION
  Report Type: 
  Country: None (occurrence: None)
  Receive Date: 20110124
  Receipt Date: 20110114
  Transmission Date: 20110831
  Serious: Yes (Hospitalization)
  Sender: FDA-Public Use
  Company Number: US-ASTRAZENECA-2010SE60570

PATIENT
  Age: 61 Year
  Sex: Female

DRUGS (1)
  1. NEXIUM [Suspect]
     Route: 048

REACTIONS (11)
  - GENERAL PHYSICAL HEALTH DETERIORATION [None]
  - FATIGUE [None]
  - ADVERSE DRUG REACTION [None]
  - ABDOMINAL DISCOMFORT [None]
  - LUNG TRANSPLANT [None]
  - STRESS [None]
  - FRACTURE [None]
  - SYSTEMIC LUPUS ERYTHEMATOSUS [None]
  - MALAISE [None]
  - VISUAL ACUITY REDUCED [None]
  - TEMPOROMANDIBULAR JOINT SYNDROME [None]
